FAERS Safety Report 18983615 (Version 2)
Quarter: 2021Q1

REPORT INFORMATION
  Report Type: Spontaneous
  Country: SE (occurrence: SE)
  Receive Date: 20210309
  Receipt Date: 20210318
  Transmission Date: 20210420
  Serious: Yes (Hospitalization, Other)
  Sender: FDA-Public Use
  Company Number: SE-AUROBINDO-AUR-APL-2021-009566

PATIENT
  Age: 29 Year
  Sex: Female

DRUGS (4)
  1. THERALEN [Suspect]
     Active Substance: TRIMEPRAZINE
     Indication: PRODUCT USED FOR UNKNOWN INDICATION
     Dosage: UNK
     Route: 065
     Dates: start: 20210209, end: 20210209
  2. OLANZAPINE. [Suspect]
     Active Substance: OLANZAPINE
     Indication: PRODUCT USED FOR UNKNOWN INDICATION
     Dosage: 15 MILLIGRAM (3 ST OLANZAPINE AT 5 MG)
     Route: 065
     Dates: start: 20210209, end: 20210209
  3. LERGIGAN (PROMETHAZINE HYDROCHLORIDE) [Suspect]
     Active Substance: PROMETHAZINE HYDROCHLORIDE
     Indication: PRODUCT USED FOR UNKNOWN INDICATION
     Dosage: UNK
     Route: 065
     Dates: start: 20210209, end: 20210209
  4. QUETIAPINE. [Suspect]
     Active Substance: QUETIAPINE
     Indication: PRODUCT USED FOR UNKNOWN INDICATION
     Dosage: UNK
     Route: 065
     Dates: start: 20210209, end: 20210209

REACTIONS (6)
  - Poisoning deliberate [Unknown]
  - Intentional overdose [Unknown]
  - Poisoning [Unknown]
  - Toxicity to various agents [Unknown]
  - Suicidal ideation [Unknown]
  - Agitation [Unknown]

NARRATIVE: CASE EVENT DATE: 20210209
